FAERS Safety Report 14391530 (Version 2)
Quarter: 2018Q1

REPORT INFORMATION
  Report Type: Spontaneous
  Country: FR (occurrence: FR)
  Receive Date: 20180116
  Receipt Date: 20180214
  Transmission Date: 20180509
  Serious: Yes (Other)
  Sender: FDA-Public Use
  Company Number: PHHY2018FR004953

PATIENT
  Sex: Female

DRUGS (5)
  1. STAGID [Concomitant]
     Active Substance: METFORMIN PAMOATE
     Indication: DIABETES MELLITUS
     Dosage: 3 DF, QD
     Route: 048
     Dates: start: 20141106, end: 20180131
  2. TAREG [Suspect]
     Active Substance: VALSARTAN
     Dosage: 160 MG, QD
     Route: 048
     Dates: start: 20151203
  3. SULFUR. [Concomitant]
     Active Substance: SULFUR
     Indication: PRODUCT USED FOR UNKNOWN INDICATION
     Dosage: 1 DF, QMO(15 CH DOSE)
     Route: 048
     Dates: start: 20160606, end: 20180131
  4. TAREG [Suspect]
     Active Substance: VALSARTAN
     Indication: HYPERTENSION
     Dosage: 80 MG, UNK
     Route: 065
     Dates: start: 201012
  5. HISTAMINUM [Concomitant]
     Indication: PRODUCT USED FOR UNKNOWN INDICATION
     Dosage: 3 DF, QD (15 CH)
     Route: 048
     Dates: start: 20170824, end: 20180131

REACTIONS (1)
  - Blood glucose abnormal [Not Recovered/Not Resolved]
